FAERS Safety Report 4424377-6 (Version None)
Quarter: 2004Q3

REPORT INFORMATION
  Report Type: 
  Country: None (occurrence: None)
  Receive Date: 20040812
  Receipt Date: 20040802
  Transmission Date: 20050211
  Serious: Yes (Other)
  Sender: FDA-Public Use
  Company Number: TW-JNJFOC-20040802037

PATIENT
  Sex: Female

DRUGS (2)
  1. TOPAMAX [Suspect]
     Indication: EPILEPSY
     Dosage: DOSAGE BEGAN AT 1MG/KG PER DAY AND INCREASED 1MG/KG DAILY EACH WEEK, FOR 4 WEEKS OR MORE.
  2. ANTIEPILEPTIC MEDICATION [Concomitant]

REACTIONS (1)
  - HYPERVENTILATION [None]
